FAERS Safety Report 25815611 (Version 1)
Quarter: 2025Q3

REPORT INFORMATION
  Report Type: Spontaneous
  Country: US (occurrence: US)
  Receive Date: 20250918
  Receipt Date: 20250918
  Transmission Date: 20251020
  Serious: No
  Sender: GALDERMA
  Company Number: US-GALDERMA-US2025016210

PATIENT

DRUGS (1)
  1. NEMLUVIO [Suspect]
     Active Substance: NEMOLIZUMAB-ILTO
     Indication: Dermatitis atopic
     Route: 058
     Dates: start: 2025, end: 2025

REACTIONS (8)
  - Eczema asteatotic [Unknown]
  - Skin exfoliation [Unknown]
  - Erythema [Unknown]
  - Rash papular [Unknown]
  - Headache [Recovered/Resolved]
  - Arthralgia [Unknown]
  - Muscle spasms [Unknown]
  - Hypersensitivity [Unknown]

NARRATIVE: CASE EVENT DATE: 20250101
